FAERS Safety Report 7806618-8 (Version None)
Quarter: 2011Q4

REPORT INFORMATION
  Report Type: 
  Country: None (occurrence: None)
  Receive Date: 20111007
  Receipt Date: 20111007
  Transmission Date: 20120403
  Serious: Yes (Hospitalization)
  Sender: FDA-Public Use
  Company Number: None

PATIENT
  Sex: Female
  Weight: 139 kg

DRUGS (6)
  1. PREDNISONE [Suspect]
     Dosage: 150 MG
  2. RITUXIMAB (MOAB C2B8 ANTI CD20, CHIMERIC) [Suspect]
     Dosage: 930 MG
  3. VINCRISTINE SULFATE [Suspect]
     Dosage: 4 MG
  4. CYCLOPHOSPHAMIDE [Suspect]
     Dosage: 2230 MG
  5. DOXORUBICIN HCL [Suspect]
     Dosage: 120 MG
  6. ETOPOSIDE [Suspect]
     Dosage: 600 MG

REACTIONS (4)
  - THROMBOSIS [None]
  - PAIN IN EXTREMITY [None]
  - FALL [None]
  - CELLULITIS [None]
